FAERS Safety Report 12112960 (Version 1)
Quarter: 2016Q1

REPORT INFORMATION
  Report Type: Spontaneous
  Country: FR (occurrence: FR)
  Receive Date: 20160225
  Receipt Date: 20160225
  Transmission Date: 20160526
  Serious: Yes (Hospitalization)
  Sender: FDA-Public Use
  Company Number: FR-009507513-1602FRA009674

PATIENT
  Age: 48 Year
  Sex: Male

DRUGS (6)
  1. ATARAX [Suspect]
     Active Substance: HYDROXYZINE\HYDROXYZINE HYDROCHLORIDE
     Dosage: UNK
     Route: 048
  2. BISEPTINE [Suspect]
     Active Substance: BENZALKONIUM CHLORIDE\BENZYL ALCOHOL\CHLORHEXIDINE
     Indication: IMPETIGO
     Dosage: UNK
     Route: 003
     Dates: start: 20151019, end: 20151026
  3. LAMISIL [Suspect]
     Active Substance: TERBINAFINE HYDROCHLORIDE
     Dosage: UNK
     Route: 048
     Dates: start: 20151019, end: 20151026
  4. PYOSTACINE [Suspect]
     Active Substance: PRISTINAMYCIN
     Indication: IMPETIGO
     Dosage: UNK
     Route: 048
     Dates: start: 20151019, end: 20151026
  5. ATARAX [Suspect]
     Active Substance: HYDROXYZINE\HYDROXYZINE HYDROCHLORIDE
     Indication: ACARODERMATITIS
     Dosage: UNK
     Route: 048
     Dates: start: 20151019, end: 20151026
  6. STROMECTOL [Suspect]
     Active Substance: IVERMECTIN
     Indication: ACARODERMATITIS
     Dosage: UNK
     Route: 048
     Dates: start: 20151019, end: 20151019

REACTIONS (1)
  - Eczema [Recovered/Resolved]

NARRATIVE: CASE EVENT DATE: 20151020
